FAERS Safety Report 5413631-7 (Version None)
Quarter: 2007Q3

REPORT INFORMATION
  Report Type: 
  Country: None (occurrence: None)
  Receive Date: 20070814
  Receipt Date: 20070420
  Transmission Date: 20080115
  Serious: No
  Sender: FDA-Public Use
  Company Number: US-BRISTOL-MYERS SQUIBB COMPANY-13755301

PATIENT
  Age: 83 Year
  Sex: Female
  Weight: 91 kg

DRUGS (6)
  1. GLUCOVANCE [Suspect]
     Indication: DIABETES MELLITUS
     Route: 048
     Dates: start: 20040101
  2. LOPRESSOR [Concomitant]
  3. LASIX [Concomitant]
  4. COUMADIN [Concomitant]
  5. PRINIVIL [Concomitant]
  6. ZOCOR [Concomitant]

REACTIONS (2)
  - BLOOD GLUCOSE DECREASED [None]
  - SOMNOLENCE [None]
